FAERS Safety Report 10083391 (Version 1)
Quarter: 2014Q2

REPORT INFORMATION
  Report Type: Report from Study
  Country: KR (occurrence: KR)
  Receive Date: 20140417
  Receipt Date: 20140417
  Transmission Date: 20141212
  Serious: Yes (Other)
  Sender: FDA-Public Use
  Company Number: KR-ROCHE-1378914

PATIENT
  Age: 34 Year
  Sex: Female

DRUGS (3)
  1. PEG-INTERFERON ALFA 2A [Suspect]
     Indication: CHRONIC HEPATITIS C
     Route: 058
  2. BEVACIZUMAB [Suspect]
     Indication: PRODUCT USED FOR UNKNOWN INDICATION
     Route: 050
  3. VIRAMID [Concomitant]
     Dosage: 400-1000MG BASED ON WEIGHTS.
     Route: 048

REACTIONS (9)
  - Retinopathy [Recovering/Resolving]
  - Retinal haemorrhage [Recovering/Resolving]
  - Retinal neovascularisation [Unknown]
  - Retinal exudates [Recovering/Resolving]
  - Hypoperfusion [Unknown]
  - Retinal ischaemia [Unknown]
  - Macular oedema [Unknown]
  - Visual acuity reduced [Not Recovered/Not Resolved]
  - Off label use [Unknown]
